FAERS Safety Report 13933156 (Version 2)
Quarter: 2017Q4

REPORT INFORMATION
  Report Type: Report from Study
  Country: US (occurrence: US)
  Receive Date: 20170904
  Receipt Date: 20171006
  Transmission Date: 20180320
  Serious: Yes (Hospitalization, Other)
  Sender: FDA-Public Use
  Company Number: US-GILEAD-2017-0291399

PATIENT
  Age: 72 Year
  Sex: Male

DRUGS (2)
  1. ADCIRCA [Concomitant]
     Active Substance: TADALAFIL
     Dosage: UNK
     Route: 065
  2. AMBRISENTAN [Suspect]
     Active Substance: AMBRISENTAN
     Indication: PRODUCT USED FOR UNKNOWN INDICATION
     Dosage: 10 MG, QD
     Route: 065

REACTIONS (10)
  - Fistula [Unknown]
  - Diarrhoea [Not Recovered/Not Resolved]
  - Fatigue [Not Recovered/Not Resolved]
  - Dizziness [Not Recovered/Not Resolved]
  - Haemorrhoidal haemorrhage [Unknown]
  - Balance disorder [Not Recovered/Not Resolved]
  - Clostridium difficile infection [Unknown]
  - Atrial fibrillation [Not Recovered/Not Resolved]
  - Syncope [Unknown]
  - Contusion [Unknown]

NARRATIVE: CASE EVENT DATE: 20170811
